FAERS Safety Report 14362210 (Version 1)
Quarter: 2018Q1

REPORT INFORMATION
  Report Type: Spontaneous
  Country: US (occurrence: US)
  Receive Date: 20180105
  Receipt Date: 20180105
  Transmission Date: 20180509
  Serious: No
  Sender: FDA-Public Use
  Company Number: None

PATIENT
  Age: 33 Year
  Sex: Female

DRUGS (1)
  1. MINIVELLE [Suspect]
     Active Substance: ESTRADIOL
     Indication: INFERTILITY
     Dosage: DOSE - 0.1 MG/24 HOUR, APPLIES 2-4 PATCHES
     Route: 061
     Dates: start: 20171229, end: 20171231

REACTIONS (3)
  - Injection site pruritus [None]
  - Urticaria [None]
  - Maternal exposure timing unspecified [None]

NARRATIVE: CASE EVENT DATE: 20171231
